FAERS Safety Report 26214653 (Version 1)
Quarter: 2025Q4

REPORT INFORMATION
  Report Type: Spontaneous
  Country: EU (occurrence: EU)
  Receive Date: 20251230
  Receipt Date: 20251230
  Transmission Date: 20260117
  Serious: Yes (Other)
  Sender: MYLAN
  Company Number: EU-UCBSA-2025079161

PATIENT
  Age: 29 Year
  Sex: Female

DRUGS (5)
  1. ALPRAZOLAM [Suspect]
     Active Substance: ALPRAZOLAM
     Indication: Mental disorder
     Dosage: UNK
  2. HYDROXYZINE [Suspect]
     Active Substance: HYDROXYZINE HYDROCHLORIDE
     Indication: Mental disorder
     Dosage: UNK
  3. LAMOTRIGINE [Suspect]
     Active Substance: LAMOTRIGINE
     Indication: Mental disorder
     Dosage: UNK
  4. PAROXETINE [Suspect]
     Active Substance: PAROXETINE
     Indication: Mental disorder
     Dosage: UNK
  5. DIAZEPAM [Suspect]
     Active Substance: DIAZEPAM
     Indication: Mental disorder
     Dosage: UNK

REACTIONS (2)
  - Toxic epidermal necrolysis [Unknown]
  - Off label use [Unknown]
